FAERS Safety Report 10661668 (Version 1)
Quarter: 2014Q4

REPORT INFORMATION
  Report Type: Spontaneous
  Country: MA (occurrence: MA)
  Receive Date: 20141218
  Receipt Date: 20141218
  Transmission Date: 20150529
  Serious: Yes (Death, Other)
  Sender: FDA-Public Use
  Company Number: PHHY2014MA161846

PATIENT
  Age: 44 Year
  Sex: Female

DRUGS (3)
  1. OXALIPLATIN. [Suspect]
     Active Substance: OXALIPLATIN
     Indication: COLON CANCER METASTATIC
     Dosage: 80 MG/M2, QD (ON DAY 1)
     Route: 065
  2. AVASTIN [Suspect]
     Active Substance: BEVACIZUMAB
     Indication: COLON CANCER METASTATIC
     Dosage: 7.5 MG/KG, QD (ON DAY 1)
     Route: 065
  3. 5-FLUOROURACIL [Suspect]
     Active Substance: FLUOROURACIL
     Indication: COLON CANCER METASTATIC
     Dosage: 325 MG/M2, QD (ON DAY 1)
     Route: 042

REACTIONS (19)
  - Malignant neoplasm progression [Fatal]
  - Muscular weakness [Recovered/Resolved]
  - Colon cancer metastatic [Fatal]
  - Generalised tonic-clonic seizure [Recovered/Resolved]
  - Agitation [Recovered/Resolved]
  - Diarrhoea [Unknown]
  - Posterior reversible encephalopathy syndrome [Recovered/Resolved]
  - Hypoaesthesia oral [Recovered/Resolved]
  - Dysphagia [Recovered/Resolved]
  - Dysarthria [Recovered/Resolved]
  - Blood pressure increased [Recovered/Resolved]
  - Headache [Recovered/Resolved]
  - Laryngospasm [Recovered/Resolved]
  - Visual impairment [Recovered/Resolved]
  - Abnormal behaviour [Recovered/Resolved]
  - Tongue paralysis [Recovered/Resolved]
  - Confusional state [Recovered/Resolved]
  - Delusion [Recovered/Resolved]
  - Sensory disturbance [Recovered/Resolved]
